FAERS Safety Report 4899790-3 (Version None)
Quarter: 2006Q1

REPORT INFORMATION
  Report Type: 
  Country: None (occurrence: None)
  Receive Date: 20060113
  Receipt Date: 20050919
  Transmission Date: 20060701
  Serious: No
  Sender: FDA-Public Use
  Company Number: 2005SP002818

PATIENT
  Age: 88 Year
  Sex: Male
  Weight: 63.5036 kg

DRUGS (5)
  1. LUNESTA [Suspect]
     Indication: DEPRESSION
     Dosage: 2 MG;HS;ORAL
     Route: 048
     Dates: start: 20050908, end: 20050910
  2. LUNESTA [Suspect]
     Indication: INSOMNIA
     Dosage: 2 MG;HS;ORAL
     Route: 048
     Dates: start: 20050908, end: 20050910
  3. LOPID [Concomitant]
  4. ALTACE [Concomitant]
  5. GLUCOTROL [Concomitant]

REACTIONS (2)
  - DRUG INEFFECTIVE [None]
  - INSOMNIA [None]
